FAERS Safety Report 15524680 (Version 2)
Quarter: 2019Q1

REPORT INFORMATION
  Report Type: Spontaneous
  Country: US (occurrence: US)
  Receive Date: 20181018
  Receipt Date: 20190314
  Transmission Date: 20190417
  Serious: No
  Sender: FDA-Public Use
  Company Number: US-PFIZER INC-2018422289

PATIENT
  Age: 78 Year
  Sex: Male

DRUGS (1)
  1. EUCRISA [Suspect]
     Active Substance: CRISABOROLE
     Dosage: 2X/DAY (APPLY A THIN LAYER TO THE AFFECTED AREA(S) 2 TIMES PER DAY)
     Route: 061
     Dates: start: 201808

REACTIONS (1)
  - Skin lesion [Unknown]
